FAERS Safety Report 19229376 (Version 1)
Quarter: 2021Q2

REPORT INFORMATION
  Report Type: Spontaneous
  Country: US (occurrence: US)
  Receive Date: 20210507
  Receipt Date: 20210507
  Transmission Date: 20210717
  Serious: No
  Sender: FDA-Public Use
  Company Number: US-BIOGEN-2021BI00977788

PATIENT
  Sex: Female

DRUGS (18)
  1. ENABLEX [Concomitant]
     Active Substance: DARIFENACIN HYDROBROMIDE
     Dosage: TABLET, EXTENDED RELEASE
     Route: 048
  2. NYSTATIN. [Concomitant]
     Active Substance: NYSTATIN
     Dosage: 1 BILLION UNIT POWDER
     Route: 065
  3. OCREVUS [Concomitant]
     Active Substance: OCRELIZUMAB
     Indication: MULTIPLE SCLEROSIS
     Route: 065
  4. PROVIGIL [Concomitant]
     Active Substance: MODAFINIL
     Route: 048
  5. FLUTICASONE. [Concomitant]
     Active Substance: FLUTICASONE
     Dosage: INHALE 2 SPRAY, INTRANASAL ROUTE
     Route: 065
  6. AMPYRA [Suspect]
     Active Substance: DALFAMPRIDINE
     Indication: MULTIPLE SCLEROSIS
     Dosage: 10 MILLIGRAM, BID
     Route: 065
  7. CARAFATE [Concomitant]
     Active Substance: SUCRALFATE
     Dosage: 100MG/ML, ORAL SUSPENSION, EMPTY STOMACH, 1 HOUR BEFORE MEAL AND AT BEDTIME
     Route: 048
  8. TOPROL XL [Concomitant]
     Active Substance: METOPROLOL SUCCINATE
     Dosage: TABLET EXTENDED RELEASE
     Route: 048
  9. ACYCLOVIR. [Concomitant]
     Active Substance: ACYCLOVIR
     Dosage: FOR 5 DAYS(PRN)
     Route: 048
  10. ADAVAIR DISKUS [Concomitant]
     Dosage: INHALATION ROUTE (MORNING AND EVENING); 250?50MCG/DOSE POWDER
     Route: 065
  11. MUCINEX [Concomitant]
     Active Substance: GUAIFENESIN
     Dosage: TABLET EXTENDED RELEASE, AS NEEDED
     Route: 048
  12. MIRALAX [Concomitant]
     Active Substance: POLYETHYLENE GLYCOL 3350
     Dosage: WITH 8OZ,MIX WITH WATER, JUICE, SODA , COFFEE AND TEA
     Route: 048
  13. CLOTRIMAZOLE. [Concomitant]
     Active Substance: CLOTRIMAZOLE
     Route: 048
  14. TYSABRI [Suspect]
     Active Substance: NATALIZUMAB
     Indication: MULTIPLE SCLEROSIS
     Route: 065
  15. PROTONIX [Concomitant]
     Active Substance: PANTOPRAZOLE SODIUM
     Dosage: TABLET, DELAYED RELEASE
     Route: 048
  16. PRACTOFOAM [Concomitant]
     Dosage: 1%?1%, AS NEEDED
     Route: 061
  17. TYLENOL WITH CODEINE [Concomitant]
     Active Substance: ACETAMINOPHEN\CODEINE PHOSPHATE
     Dosage: 300?60MG, AS NEEDED
     Route: 048
  18. CLARITIN [Concomitant]
     Active Substance: LORATADINE
     Route: 048

REACTIONS (2)
  - Feeling abnormal [Unknown]
  - Respiratory tract infection [Recovered/Resolved]
